FAERS Safety Report 11050141 (Version 2)
Quarter: 2015Q2

REPORT INFORMATION
  Report Type: Spontaneous
  Country: US (occurrence: US)
  Receive Date: 20150420
  Receipt Date: 20150507
  Transmission Date: 20150821
  Serious: Yes (Other)
  Sender: FDA-Public Use
  Company Number: US-ENDO PHARMACEUTICALS INC.-201501097

PATIENT
  Age: 65 Year
  Sex: Male
  Weight: 95.34 kg

DRUGS (8)
  1. LISINOPRIL TABLETS [Concomitant]
     Active Substance: LISINOPRIL
  2. AMLODIPINE [Concomitant]
     Active Substance: AMLODIPINE BESYLATE
  3. NIACIN. [Concomitant]
     Active Substance: NIACIN
  4. TESTOPEL [Suspect]
     Active Substance: TESTOSTERONE
     Indication: BLOOD TESTOSTERONE DECREASED
     Dosage: IMPLANT
     Dates: start: 20121213, end: 2013
  5. AXIRON [Suspect]
     Active Substance: TESTOSTERONE
     Indication: BLOOD TESTOSTERONE DECREASED
     Route: 061
     Dates: start: 20120503, end: 20121213
  6. TESTOPEL [Suspect]
     Active Substance: TESTOSTERONE
     Dosage: IMPLANT
     Dates: start: 201202
  7. TESTOSTERONE. [Suspect]
     Active Substance: TESTOSTERONE
     Dates: start: 20120503
  8. ASPIRIN. [Concomitant]
     Active Substance: ASPIRIN

REACTIONS (1)
  - Cerebrovascular accident [Unknown]

NARRATIVE: CASE EVENT DATE: 20140121
